FAERS Safety Report 8573471-7 (Version None)
Quarter: 2012Q3

REPORT INFORMATION
  Report Type: 
  Country: None (occurrence: None)
  Receive Date: 20120806
  Receipt Date: 20120731
  Transmission Date: 20120928
  Serious: Yes (Death, Hospitalization, Other)
  Sender: FDA-Public Use
  Company Number: FR-ELI_LILLY_AND_COMPANY-FR201207009138

PATIENT
  Sex: Female

DRUGS (10)
  1. CISPLATIN [Concomitant]
  2. SOLU-MEDROL [Concomitant]
     Dosage: 80 MG, UNK
  3. ZOFRAN [Concomitant]
     Dosage: 8 MG, UNK
  4. TARCEVA [Concomitant]
     Indication: ADENOCARCINOMA
     Dosage: 150 MG, UNK
     Dates: start: 20100723, end: 20120624
  5. NEULASTA [Concomitant]
     Dosage: 6 MG, UNK
     Dates: start: 20120614, end: 20120614
  6. ALIMTA [Suspect]
     Indication: ADENOCARCINOMA
     Dosage: 765 MG, UNK
     Route: 042
     Dates: start: 20120613
  7. GEMZAR [Suspect]
     Dosage: UNK
     Dates: start: 20100317, end: 20120410
  8. CARBOPLATIN [Concomitant]
     Indication: ADENOCARCINOMA
     Dosage: 279 MG, UNK
     Dates: start: 20120613, end: 20120613
  9. EMEND [Concomitant]
     Dosage: 125 MG, UNK
     Dates: start: 20120613, end: 20120613
  10. EMEND [Concomitant]
     Dosage: 80 MG, UNK
     Dates: start: 20120614, end: 20120615

REACTIONS (4)
  - APLASIA [None]
  - NEOPLASM PROGRESSION [None]
  - DEATH [None]
  - SEPTIC SHOCK [None]
